FAERS Safety Report 5428575-4 (Version None)
Quarter: 2007Q3

REPORT INFORMATION
  Report Type: 
  Country: None (occurrence: None)
  Receive Date: 20070731
  Receipt Date: 20070406
  Transmission Date: 20080115
  Serious: No
  Sender: FDA-Public Use
  Company Number: US200704001976

PATIENT
  Age: 52 Year
  Sex: Female
  Weight: 98.9 kg

DRUGS (13)
  1. BYETTA [Suspect]
     Indication: TYPE 2 DIABETES MELLITUS
     Dosage: 5 UG, 2/D, SUBCUTANEOUS; 10 UG, 2/D, SUBCUTANEOUS
     Route: 058
     Dates: start: 20061001, end: 20060101
  2. BYETTA [Suspect]
     Indication: TYPE 2 DIABETES MELLITUS
     Dosage: 5 UG, 2/D, SUBCUTANEOUS; 10 UG, 2/D, SUBCUTANEOUS
     Route: 058
     Dates: start: 20060101
  3. EXENATIDE [Concomitant]
  4. DISPOSABLE DEVICE [Concomitant]
  5. CELEXA [Concomitant]
  6. GLUCOVANCE [Concomitant]
  7. AVANDIA [Concomitant]
  8. VITAMIN E [Concomitant]
  9. CRESTOR [Concomitant]
  10. ALTACE [Concomitant]
  11. INDAPAMIDE [Concomitant]
  12. DILTIAZEM [Concomitant]
  13. MYOFLEX [Concomitant]

REACTIONS (4)
  - ARTHRALGIA [None]
  - BACK PAIN [None]
  - DIZZINESS [None]
  - GASTROINTESTINAL PAIN [None]
